FAERS Safety Report 21751769 (Version 1)
Quarter: 2022Q4

REPORT INFORMATION
  Report Type: Spontaneous
  Country: VN (occurrence: VN)
  Receive Date: 20221220
  Receipt Date: 20221220
  Transmission Date: 20230113
  Serious: Yes (Other)
  Sender: FDA-Public Use
  Company Number: VN-002147023-NVSC2022VN291797

PATIENT
  Age: 62 Year
  Sex: Female

DRUGS (8)
  1. RIBOCICLIB [Suspect]
     Active Substance: RIBOCICLIB
     Indication: Breast cancer
     Dosage: UNK (3 TABLETS)
     Route: 065
     Dates: start: 202112, end: 202201
  2. RIBOCICLIB [Suspect]
     Active Substance: RIBOCICLIB
     Indication: Metastases to lung
     Dosage: UNK (3 TABLETS)
     Route: 065
     Dates: start: 202202, end: 202203
  3. RIBOCICLIB [Suspect]
     Active Substance: RIBOCICLIB
     Dosage: UNK (2 TABLETS)
     Route: 065
     Dates: start: 202204, end: 202206
  4. RIBOCICLIB [Suspect]
     Active Substance: RIBOCICLIB
     Dosage: UNK (2 TABLETS)
     Route: 065
     Dates: start: 202207, end: 202208
  5. RIBOCICLIB [Suspect]
     Active Substance: RIBOCICLIB
     Dosage: UNK (2 TABLETS)
     Route: 065
     Dates: start: 202209, end: 202210
  6. RIBOCICLIB [Suspect]
     Active Substance: RIBOCICLIB
     Dosage: UNK (2 TABLETS)
     Route: 065
     Dates: start: 202211
  7. LETROZOLE [Suspect]
     Active Substance: LETROZOLE
     Indication: Breast cancer
     Dosage: UNK
     Route: 065
     Dates: start: 202112
  8. LETROZOLE [Suspect]
     Active Substance: LETROZOLE
     Indication: Metastases to lung

REACTIONS (1)
  - Granulocytopenia [Unknown]
